FAERS Safety Report 11765992 (Version 1)
Quarter: 2015Q4

REPORT INFORMATION
  Report Type: Report from Study
  Country: IN (occurrence: IN)
  Receive Date: 20151122
  Receipt Date: 20151122
  Transmission Date: 20160304
  Serious: Yes (Death)
  Sender: FDA-Public Use
  Company Number: PHHY2015IN152480

PATIENT
  Age: 88 Year
  Sex: Female

DRUGS (2)
  1. SYNDOPA [Suspect]
     Active Substance: LEVODOPA
     Indication: PARKINSON^S DISEASE
     Dosage: QD
     Route: 048
     Dates: start: 20120303
  2. EXELON PATCH [Suspect]
     Active Substance: RIVASTIGMINE
     Indication: DEMENTIA ALZHEIMER^S TYPE
     Dosage: PATCH 5 (CM2) 4.6 MG, QD
     Route: 062
     Dates: start: 20120303

REACTIONS (1)
  - Respiratory disorder [Fatal]
